FAERS Safety Report 21168173 (Version 1)
Quarter: 2022Q3

REPORT INFORMATION
  Report Type: Report from Study
  Country: ES (occurrence: ES)
  Receive Date: 20220803
  Receipt Date: 20220803
  Transmission Date: 20221027
  Serious: Yes (Other)
  Sender: FDA-Public Use
  Company Number: ES-GLAXOSMITHKLINE-ES2022GSK114064

PATIENT

DRUGS (1)
  1. BELANTAMAB MAFODOTIN [Suspect]
     Active Substance: BELANTAMAB MAFODOTIN
     Indication: Plasma cell myeloma
     Dosage: 100 MG/VIAL 2.5 MG/KG EVERY 3 WEEKS
     Route: 042

REACTIONS (1)
  - Corneal epithelial microcysts [Recovered/Resolved]

NARRATIVE: CASE EVENT DATE: 20220201
